FAERS Safety Report 22621315 (Version 1)
Quarter: 2023Q2

REPORT INFORMATION
  Report Type: Spontaneous
  Country: ZA (occurrence: ZA)
  Receive Date: 20230620
  Receipt Date: 20230620
  Transmission Date: 20230722
  Serious: Yes (Hospitalization)
  Sender: FDA-Public Use
  Company Number: ZA-PFIZER INC-PV202300105711

PATIENT
  Age: 54 Year
  Sex: Female

DRUGS (7)
  1. METHOTREXATE SODIUM [Suspect]
     Active Substance: METHOTREXATE SODIUM
     Dosage: 25 MG, WEEKLY
     Dates: start: 201709, end: 202006
  2. CHLOROQUINE [Concomitant]
     Active Substance: CHLOROQUINE
     Dosage: 1 MG, DAILY
     Dates: start: 202004, end: 202205
  3. VIMOVO [Concomitant]
     Active Substance: ESOMEPRAZOLE MAGNESIUM\NAPROXEN
     Dosage: 1 MG, 2X/DAY
     Dates: start: 201702
  4. PREDNISONE [Concomitant]
     Active Substance: PREDNISONE
     Dosage: 5 MG, DAILY
     Dates: start: 201711, end: 201802
  5. TRAMACET ER [Concomitant]
     Dosage: 2 MG, TDS
     Dates: start: 201712
  6. METHYLPREDNISOLONE ACETATE [Concomitant]
     Active Substance: METHYLPREDNISOLONE ACETATE
     Dosage: 4 MG, ALTERNATE DAY
     Dates: start: 202004
  7. SULFASALAZINE [Concomitant]
     Active Substance: SULFASALAZINE
     Dosage: 2 MG,TDS
     Dates: start: 201702, end: 202004

REACTIONS (10)
  - Drug intolerance [Unknown]
  - Red blood cell count decreased [Unknown]
  - Haematocrit decreased [Unknown]
  - Haemoglobin decreased [Unknown]
  - Blood chloride increased [Unknown]
  - Protein total decreased [Unknown]
  - C-reactive protein increased [Unknown]
  - Carbon dioxide decreased [Unknown]
  - Fibrin D dimer increased [Unknown]
  - Blood uric acid decreased [Unknown]

NARRATIVE: CASE EVENT DATE: 20191228
